FAERS Safety Report 22818870 (Version 6)
Quarter: 2024Q3

REPORT INFORMATION
  Report Type: Report from Study
  Country: CO (occurrence: CO)
  Receive Date: 20230814
  Receipt Date: 20240824
  Transmission Date: 20241017
  Serious: Yes (Other)
  Sender: NOVARTIS
  Company Number: CO-002147023-NVSC2023CO175525

PATIENT
  Sex: Female
  Weight: 55 kg

DRUGS (7)
  1. COSENTYX [Suspect]
     Active Substance: SECUKINUMAB
     Indication: Psoriatic arthropathy
     Dosage: 300 MG, QMO
     Route: 058
     Dates: start: 20191005
  2. COSENTYX [Suspect]
     Active Substance: SECUKINUMAB
     Dosage: UNK (05 JUN ON MONDAY)
     Route: 065
  3. COSENTYX [Suspect]
     Active Substance: SECUKINUMAB
     Dosage: UNK (ON FRIDAY)
     Route: 065
  4. COSENTYX [Suspect]
     Active Substance: SECUKINUMAB
     Dosage: 150 MG, QMO
     Route: 058
  5. COSENTYX [Suspect]
     Active Substance: SECUKINUMAB
     Dosage: 150 MG, QMO
     Route: 058
     Dates: start: 20191005
  6. COSENTYX [Suspect]
     Active Substance: SECUKINUMAB
     Dosage: 1 DOSAGE FORM (IN LAST YEAR) (IN AUGUST)
     Route: 058
  7. COSENTYX [Suspect]
     Active Substance: SECUKINUMAB
     Dosage: 300 MG, QMO
     Route: 058

REACTIONS (19)
  - Deafness transitory [Unknown]
  - Neutrophil count decreased [Unknown]
  - Immunosuppression [Unknown]
  - Oropharyngeal pain [Unknown]
  - Upper respiratory tract congestion [Unknown]
  - Nausea [Unknown]
  - Pallor [Unknown]
  - Xanthopsia [Unknown]
  - Decreased immune responsiveness [Unknown]
  - Arthralgia [Unknown]
  - Herpes virus infection [Unknown]
  - Oral herpes [Unknown]
  - Malaise [Unknown]
  - Inflammation [Unknown]
  - Foot deformity [Unknown]
  - Infection [Unknown]
  - Bronchitis [Unknown]
  - White blood cell count decreased [Unknown]
  - Platelet count decreased [Unknown]
